FAERS Safety Report 17073070 (Version 1)
Quarter: 2019Q4

REPORT INFORMATION
  Report Type: Report from Study
  Country: AR (occurrence: AR)
  Receive Date: 20191125
  Receipt Date: 20191125
  Transmission Date: 20200122
  Serious: Yes (Hospitalization, Other)
  Sender: FDA-Public Use
  Company Number: AR-ELI_LILLY_AND_COMPANY-AR201911004881

PATIENT
  Age: 72 Year
  Sex: Male

DRUGS (2)
  1. CETUXIMAB. [Suspect]
     Active Substance: CETUXIMAB
     Indication: COLON CANCER METASTATIC
     Dosage: 438 MG, WEEKLY (1/W)
     Route: 065
     Dates: start: 20190918
  2. CETUXIMAB. [Suspect]
     Active Substance: CETUXIMAB
     Dosage: 438 MG, WEEKLY (1/W)
     Route: 065
     Dates: start: 20191023

REACTIONS (3)
  - Weight decreased [Unknown]
  - Peritonitis [Not Recovered/Not Resolved]
  - Asthenia [Not Recovered/Not Resolved]

NARRATIVE: CASE EVENT DATE: 20191030
